FAERS Safety Report 7278195-4 (Version None)
Quarter: 2011Q1

REPORT INFORMATION
  Report Type: 
  Country: None (occurrence: None)
  Receive Date: 20110207
  Receipt Date: 20110202
  Transmission Date: 20110831
  Serious: Yes (Hospitalization)
  Sender: FDA-Public Use
  Company Number: B0697681A

PATIENT
  Sex: Male

DRUGS (1)
  1. LANOXIN [Suspect]
     Route: 048
     Dates: start: 20100601, end: 20100910

REACTIONS (3)
  - RENAL FAILURE [None]
  - CARDIOACTIVE DRUG LEVEL INCREASED [None]
  - BRADYCARDIA [None]
